FAERS Safety Report 24407967 (Version 1)
Quarter: 2024Q4

REPORT INFORMATION
  Report Type: Report from Study
  Country: CL (occurrence: CL)
  Receive Date: 20241007
  Receipt Date: 20241007
  Transmission Date: 20250114
  Serious: Yes (Hospitalization, Other)
  Sender: UCB
  Company Number: CL-UCBSA-2024050871

PATIENT
  Age: 76 Year
  Sex: Male

DRUGS (3)
  1. ROTIGOTINE [Suspect]
     Active Substance: ROTIGOTINE
     Indication: Parkinson^s disease
     Dosage: 4 MILLIGRAM, ONCE DAILY (QD)
     Route: 062
     Dates: start: 20230629, end: 2023
  2. ROTIGOTINE [Suspect]
     Active Substance: ROTIGOTINE
     Dosage: UNK
     Route: 062
     Dates: start: 2024, end: 2024
  3. BENSERAZIDE\LEVODOPA [Concomitant]
     Active Substance: BENSERAZIDE\LEVODOPA
     Indication: Product used for unknown indication
     Dosage: 7 PILLS A DAY

REACTIONS (4)
  - Hospitalisation [Not Recovered/Not Resolved]
  - Hallucination, visual [Recovered/Resolved]
  - Memory impairment [Recovered/Resolved]
  - Hypersensitivity [Recovered/Resolved]

NARRATIVE: CASE EVENT DATE: 20230701
